FAERS Safety Report 23392805 (Version 1)
Quarter: 2024Q1

REPORT INFORMATION
  Report Type: Report from Study
  Country: US (occurrence: US)
  Receive Date: 20240111
  Receipt Date: 20240111
  Transmission Date: 20240410
  Serious: Yes (Hospitalization, Other)
  Sender: FDA-Public Use
  Company Number: US-ABBVIE-5579565

PATIENT
  Sex: Female

DRUGS (1)
  1. SKYRIZI [Suspect]
     Active Substance: RISANKIZUMAB-RZAA
     Indication: Psoriasis
     Route: 058
     Dates: start: 20221110

REACTIONS (7)
  - Loss of consciousness [Unknown]
  - Ear pruritus [Unknown]
  - Fall [Not Recovered/Not Resolved]
  - Hospitalisation [Unknown]
  - Hot flush [Unknown]
  - Anxiety [Unknown]
  - Head injury [Unknown]
